FAERS Safety Report 5290547-0 (Version None)
Quarter: 2007Q2

REPORT INFORMATION
  Report Type: 
  Country: None (occurrence: None)
  Receive Date: 20070409
  Receipt Date: 20070330
  Transmission Date: 20071010
  Serious: Yes (Hospitalization, Other)
  Sender: FDA-Public Use
  Company Number: HQWYE284102APR07

PATIENT
  Sex: Male
  Weight: 86 kg

DRUGS (9)
  1. SIROLIMUS [Suspect]
     Indication: PROPHYLAXIS AGAINST TRANSPLANT REJECTION
     Route: 048
     Dates: start: 20070306, end: 20070328
  2. SIROLIMUS [Suspect]
     Route: 048
     Dates: end: 20070305
  3. MYCOPHENOLATE MOFETIL [Concomitant]
     Dosage: NOT PROVIDED
     Route: 065
     Dates: start: 20050627
  4. PRAVASTATIN [Concomitant]
     Indication: PROPHYLAXIS
     Dosage: NOT PROVIDED
     Route: 065
     Dates: start: 20050810, end: 20070327
  5. DILTIAZEM [Concomitant]
     Dosage: NOT PROVIDED
     Route: 065
     Dates: start: 20051203
  6. FUROSEMIDE [Concomitant]
     Dosage: NOT PROVIDED
     Route: 065
     Dates: start: 20050622
  7. ACETYLSALICYLIC ACID SRT [Concomitant]
     Dosage: NOT PROVIDED
     Route: 065
     Dates: start: 20051203
  8. CYCLOSPORINE [Concomitant]
     Dosage: NOT PROVIDED
     Route: 065
     Dates: start: 20050621
  9. PREDNISONE [Concomitant]
     Dosage: NOT PROVIDED
     Route: 065
     Dates: start: 20050627

REACTIONS (2)
  - ASTHENIA [None]
  - LIVER FUNCTION TEST ABNORMAL [None]
